FAERS Safety Report 6022345-4 (Version None)
Quarter: 2008Q4

REPORT INFORMATION
  Report Type: 
  Country: None (occurrence: None)
  Receive Date: 20081230
  Receipt Date: 20081218
  Transmission Date: 20090506
  Serious: Yes (Hospitalization, Other)
  Sender: FDA-Public Use
  Company Number: US-PFIZER INC-2007101860

PATIENT
  Sex: Female
  Weight: 59 kg

DRUGS (3)
  1. DILANTIN [Suspect]
     Indication: GRAND MAL CONVULSION
     Dates: start: 20050301, end: 20050515
  2. CARBATROL [Concomitant]
     Indication: GRAND MAL CONVULSION
  3. LAMICTAL [Concomitant]
     Indication: GRAND MAL CONVULSION
     Dates: start: 20030601

REACTIONS (27)
  - ANAEMIA [None]
  - ATAXIA [None]
  - ATRIAL HYPERTROPHY [None]
  - BALANCE DISORDER [None]
  - BLOOD MAGNESIUM DECREASED [None]
  - CHALAZION [None]
  - CONVULSION [None]
  - CORNEAL PERFORATION [None]
  - CORNEAL THINNING [None]
  - DEHYDRATION [None]
  - DIABETES MELLITUS [None]
  - EYE INFECTION STAPHYLOCOCCAL [None]
  - EYELID PTOSIS [None]
  - HORDEOLUM [None]
  - HYPERTENSION [None]
  - INFECTED SEBACEOUS CYST [None]
  - MUSCLE SPASMS [None]
  - PHOTOPHOBIA [None]
  - PNEUMONIA ASPIRATION [None]
  - RESPIRATORY FAILURE [None]
  - SCAR [None]
  - SICCA SYNDROME [None]
  - STAPHYLOCOCCAL INFECTION [None]
  - STEVENS-JOHNSON SYNDROME [None]
  - ULCERATIVE KERATITIS [None]
  - VISUAL FIELD DEFECT [None]
  - WHITE BLOOD CELL COUNT DECREASED [None]
